FAERS Safety Report 7355919-9 (Version None)
Quarter: 2011Q1

REPORT INFORMATION
  Report Type: 
  Country: None (occurrence: None)
  Receive Date: 20110316
  Receipt Date: 20110228
  Transmission Date: 20110831
  Serious: Yes (Hospitalization)
  Sender: FDA-Public Use
  Company Number: CN-RANBAXY-2011R1-42856

PATIENT
  Age: 22 Year
  Sex: Female

DRUGS (1)
  1. PHENOBARBITAL [Suspect]
     Indication: CONVULSION
     Dosage: UNK
     Route: 048

REACTIONS (3)
  - LIVER FUNCTION TEST ABNORMAL [None]
  - JAUNDICE [None]
  - LIVER DISORDER [None]
